FAERS Safety Report 4598843-7 (Version None)
Quarter: 2005Q1

REPORT INFORMATION
  Report Type: 
  Country: None (occurrence: None)
  Receive Date: 20050304
  Receipt Date: 20041214
  Transmission Date: 20050727
  Serious: Yes (Other)
  Sender: FDA-Public Use
  Company Number: GB-JNJFOC-20050301020

PATIENT
  Sex: Male

DRUGS (9)
  1. REMICADE [Suspect]
     Indication: CROHN'S DISEASE
     Dosage: 240MG-260MG.
  2. OCTREOTIDE [Concomitant]
  3. PARACETAMOL [Concomitant]
  4. PREDNISOLONE [Concomitant]
  5. MST [Concomitant]
  6. CYCLIZINE [Concomitant]
  7. VITAMIN B-12 [Concomitant]
  8. FOLIC ACID [Concomitant]
  9. FERROUS SULFATE TAB [Concomitant]

REACTIONS (2)
  - HYPOTHERMIA NEONATAL [None]
  - SMALL FOR DATES BABY [None]
